FAERS Safety Report 5597951-1 (Version None)
Quarter: 2008Q1

REPORT INFORMATION
  Report Type: 
  Country: None (occurrence: None)
  Receive Date: 20080116
  Receipt Date: 20080111
  Transmission Date: 20080703
  Serious: Yes (Death)
  Sender: FDA-Public Use
  Company Number: TCI2008A00114

PATIENT
  Age: 75 Year
  Sex: Female

DRUGS (3)
  1. TAKEPRON (LANSOPRAZOLE) (UNKNOWN) [Suspect]
  2. FOSAMAC (ALENDRONATE SODIUM) (TABLETS) [Concomitant]
  3. PREDNISOLONE [Concomitant]

REACTIONS (3)
  - AGRANULOCYTOSIS [None]
  - HEPATITIS ACUTE [None]
  - SHOCK [None]
